FAERS Safety Report 20369099 (Version 1)
Quarter: 2022Q1

REPORT INFORMATION
  Report Type: Spontaneous
  Country: US (occurrence: US)
  Receive Date: 20220124
  Receipt Date: 20220124
  Transmission Date: 20220423
  Serious: No
  Sender: FDA-Public Use
  Company Number: US-NAPO PHARMACEUTICALS-2021US003025

PATIENT
  Age: 57 Year
  Sex: Female

DRUGS (2)
  1. MYTESI [Suspect]
     Active Substance: CROFELEMER
     Indication: Gastroenteritis
     Dosage: 125 MG, BID
     Route: 048
     Dates: start: 20210402
  2. MYTESI [Suspect]
     Active Substance: CROFELEMER
     Indication: Colitis

REACTIONS (2)
  - Drug ineffective for unapproved indication [Unknown]
  - Off label use [Unknown]

NARRATIVE: CASE EVENT DATE: 20210402
